FAERS Safety Report 7338962-5 (Version None)
Quarter: 2011Q1

REPORT INFORMATION
  Report Type: 
  Country: None (occurrence: None)
  Receive Date: 20110308
  Receipt Date: 20110223
  Transmission Date: 20110831
  Serious: Yes (Death, Life-Threatening, Hospitalization, Other)
  Sender: FDA-Public Use
  Company Number: FR-ELI_LILLY_AND_COMPANY-FR201102006356

PATIENT
  Sex: Male

DRUGS (7)
  1. SEROPLEX [Concomitant]
     Indication: DEPRESSION
     Dosage: 10 MG, DAILY (1/D)
  2. DULOXETINE HYDROCHLORIDE [Suspect]
     Indication: DEPRESSION
     Dosage: 60 MG, UNK
     Route: 048
     Dates: start: 20100921
  3. SERESTA [Concomitant]
     Indication: DEPRESSION
     Dosage: 125 MG, DAILY (1/D)
  4. B1 [Concomitant]
  5. B6 ASMEDIC [Concomitant]
  6. IMOVANE [Concomitant]
  7. SEROPLEX [Concomitant]
     Dosage: 20 MG, UNK

REACTIONS (3)
  - COMPLETED SUICIDE [None]
  - CARDIAC ARREST [None]
  - COMA [None]
